FAERS Safety Report 16208516 (Version 1)
Quarter: 2019Q2

REPORT INFORMATION
  Report Type: Spontaneous
  Country: US (occurrence: US)
  Receive Date: 20190417
  Receipt Date: 20190417
  Transmission Date: 20190711
  Serious: Yes (Other)
  Sender: FDA-Public Use
  Company Number: US-ELI_LILLY_AND_COMPANY-US201904007632

PATIENT
  Sex: Male

DRUGS (2)
  1. CYMBALTA [Suspect]
     Active Substance: DULOXETINE HYDROCHLORIDE
     Indication: NEURALGIA
     Dosage: 30 MG, BID
     Route: 065
     Dates: start: 2016
  2. CYMBALTA [Suspect]
     Active Substance: DULOXETINE HYDROCHLORIDE
     Dosage: 30 MG, DAILY
     Route: 065

REACTIONS (15)
  - Moaning [Unknown]
  - Tinnitus [Unknown]
  - Headache [Unknown]
  - Anxiety [Unknown]
  - Insomnia [Unknown]
  - Lethargy [Unknown]
  - Dyspnoea [Unknown]
  - Hallucination, visual [Unknown]
  - Nightmare [Unknown]
  - Tremor [Unknown]
  - Irritability [Unknown]
  - Deafness unilateral [Unknown]
  - Abnormal behaviour [Unknown]
  - Paraesthesia [Unknown]
  - Withdrawal syndrome [Unknown]
